FAERS Safety Report 19457074 (Version 1)
Quarter: 2021Q2

REPORT INFORMATION
  Report Type: Spontaneous
  Country: FR (occurrence: FR)
  Receive Date: 20210624
  Receipt Date: 20210624
  Transmission Date: 20210717
  Serious: Yes (Hospitalization)
  Sender: FDA-Public Use
  Company Number: FR-TEVA-2021-FR-1925151

PATIENT
  Age: 29 Year
  Sex: Female

DRUGS (4)
  1. CHLORHYDRATE DE PAROXETINE ANHYDRE [Suspect]
     Active Substance: PAROXETINE
     Indication: MIXED ANXIETY AND DEPRESSIVE DISORDER
     Route: 048
     Dates: start: 202101, end: 20210119
  2. LEVOTHYROX 100 MICROGRAMMES, COMPRIM SECABLE [Concomitant]
     Dosage: SCORED TABLET, 100 MCG
     Route: 048
  3. IMOVANE [Concomitant]
     Active Substance: ZOPICLONE
     Dosage: 7.5 MG
     Route: 048
  4. ALPRAZOLAM. [Concomitant]
     Active Substance: ALPRAZOLAM
     Dosage: 1.5 MG
     Route: 048

REACTIONS (5)
  - Hallucination [Recovered/Resolved]
  - Depersonalisation/derealisation disorder [Recovered/Resolved]
  - Confusional state [Recovered/Resolved]
  - Psychiatric decompensation [Recovered/Resolved]
  - Panic attack [Recovered/Resolved]

NARRATIVE: CASE EVENT DATE: 202101
